FAERS Safety Report 7474580-6 (Version None)
Quarter: 2011Q1

REPORT INFORMATION
  Report Type: 
  Country: None (occurrence: None)
  Receive Date: 20110302
  Receipt Date: 20100730
  Transmission Date: 20110831
  Serious: Yes (Hospitalization, Other)
  Sender: FDA-Public Use
  Company Number: 163-21880-10061508

PATIENT
  Age: 60 Year
  Sex: Male

DRUGS (3)
  1. REVLIMID [Suspect]
     Indication: MULTIPLE MYELOMA
     Dosage: 5MG-10MG, PO; 10 MG, M, W, F, PO; 15 MG, M, W, F X 21 DAYS, PO
     Route: 048
     Dates: start: 20090601
  2. REVLIMID [Suspect]
     Indication: MULTIPLE MYELOMA
     Dosage: 5MG-10MG, PO; 10 MG, M, W, F, PO; 15 MG, M, W, F X 21 DAYS, PO
     Route: 048
     Dates: start: 20100101
  3. REVLIMID [Suspect]
     Indication: MULTIPLE MYELOMA
     Dosage: 5MG-10MG, PO; 10 MG, M, W, F, PO; 15 MG, M, W, F X 21 DAYS, PO
     Route: 048
     Dates: start: 20100301, end: 20100601

REACTIONS (3)
  - ROTATOR CUFF SYNDROME [None]
  - BRONCHITIS [None]
  - PNEUMONIA [None]
